FAERS Safety Report 9502572 (Version 5)
Quarter: 2014Q1

REPORT INFORMATION
  Report Type: Spontaneous
  Country: JP (occurrence: JP)
  Receive Date: 20130906
  Receipt Date: 20140117
  Transmission Date: 20141002
  Serious: Yes (Disabling, Other)
  Sender: FDA-Public Use
  Company Number: JP-JNJFOC-20130902312

PATIENT
  Age: 73 Year
  Sex: Male

DRUGS (12)
  1. FINIBAX [Suspect]
     Indication: PANCREATITIS ACUTE
     Route: 041
     Dates: start: 20130403, end: 20130422
  2. FINIBAX [Suspect]
     Indication: CHOLANGITIS SUPPURATIVE
     Route: 041
     Dates: start: 20130403, end: 20130422
  3. CEFOPERAZONE [Concomitant]
     Indication: ANTIBIOTIC THERAPY
     Route: 065
  4. SULBACTAM [Concomitant]
     Indication: ANTIBIOTIC THERAPY
     Route: 065
  5. DOPAMINE HYDROCHLORIDE [Concomitant]
     Indication: PANCREATITIS ACUTE
     Route: 041
     Dates: start: 20130327, end: 20130329
  6. DOBUTAMINE HYDROCHLORIDE [Concomitant]
     Indication: PRODUCT USED FOR UNKNOWN INDICATION
     Route: 041
     Dates: end: 20130328
  7. NAFAMOSTAT MESILATE [Concomitant]
     Indication: PANCREATITIS ACUTE
     Route: 041
     Dates: start: 20130328, end: 20130413
  8. MAINTATE [Concomitant]
     Indication: ATRIAL FIBRILLATION
     Route: 048
     Dates: start: 20130329, end: 20130406
  9. FUROSEMIDE [Concomitant]
     Indication: RENAL IMPAIRMENT
     Route: 042
  10. FUROSEMIDE [Concomitant]
     Indication: DIURETIC THERAPY
     Route: 042
  11. CIPROFLOXACIN HYDROCHLORIDE [Concomitant]
     Indication: ANTIBIOTIC THERAPY
     Route: 065
  12. VITAMIN K [Concomitant]
     Indication: PROTHROMBIN TIME PROLONGED
     Route: 065

REACTIONS (2)
  - Tubulointerstitial nephritis [Recovering/Resolving]
  - Eosinophil count increased [Recovering/Resolving]
